FAERS Safety Report 5096825-2 (Version None)
Quarter: 2006Q3

REPORT INFORMATION
  Report Type: 
  Country: None (occurrence: None)
  Receive Date: 20060831
  Receipt Date: 20060817
  Transmission Date: 20061208
  Serious: Yes (Death)
  Sender: FDA-Public Use
  Company Number: 2006-04550

PATIENT
  Age: 53 Year
  Sex: Female

DRUGS (19)
  1. DOXYCYCLINE HYCLATE (WATSON LABORATORIES) (DOXYCYCLINE TARTRATE) 100MG [Suspect]
     Indication: DRUG USE FOR UNKNOWN INDICATION
     Dosage: 1 OR 2 TBS TAKEN TOTAL, ORAL
     Route: 048
     Dates: start: 20060804, end: 20060801
  2. NEXIUM [Suspect]
     Indication: GASTROOESOPHAGEAL REFLUX DISEASE
     Dosage: 40 MG, DAILY,  ORAL
     Route: 048
     Dates: start: 20060308
  3. GABAPENTIN [Concomitant]
  4. DIAZEPAM [Concomitant]
  5. BUMEX [Concomitant]
  6. ALLOPURINOL [Concomitant]
  7. LEVOTHYROXINE SODIUM [Concomitant]
  8. VICODIN [Concomitant]
  9. FENTANYL TRANSDERMAL SYSTEM [Concomitant]
  10. TIZANIDINE HCL [Concomitant]
  11. NITROGLYCERIN (GLYCERYL TRINITRATE) TABLET [Concomitant]
  12. ZOLOFT [Concomitant]
  13. POTASSIUM (POTASSIUM) [Concomitant]
  14. INSULIN [Concomitant]
  15. REGLAN [Concomitant]
  16. ALBUTEROL SULFATE [Concomitant]
  17. COMPAZINE [Concomitant]
  18. MYLANTA (SIMETICONE, ALUMINIUM HYDROXIDE GEL, DRIED) [Concomitant]
  19. PREDNISONE TAB [Concomitant]

REACTIONS (4)
  - CARDIAC ARREST [None]
  - DRUG INTERACTION [None]
  - MYOCARDIAL INFARCTION [None]
  - VENTRICULAR FIBRILLATION [None]
